FAERS Safety Report 11980820 (Version 1)
Quarter: 2016Q1

REPORT INFORMATION
  Report Type: Spontaneous
  Country: FR (occurrence: FR)
  Receive Date: 20160129
  Receipt Date: 20160129
  Transmission Date: 20160526
  Serious: Yes (Other)
  Sender: FDA-Public Use
  Company Number: FR-ALLERGAN-1602099US

PATIENT
  Age: 3 Month
  Sex: Female

DRUGS (4)
  1. RIFAMPICINE [Concomitant]
     Active Substance: RIFAMPIN
     Indication: EYE INFECTION
  2. COMBIGAN [Suspect]
     Active Substance: BRIMONIDINE TARTRATE\TIMOLOL MALEATE
     Indication: MEDICATION ERROR
     Dosage: 1 GTT, BID
     Route: 047
     Dates: start: 20160122, end: 20160125
  3. DACUDOSES [Concomitant]
     Indication: EYE INFECTION
     Route: 047
  4. DACUDOSES [Concomitant]
     Indication: EYE LUBRICATION THERAPY

REACTIONS (4)
  - Somnolence [Recovered/Resolved]
  - Eye pain [Recovered/Resolved]
  - Wrong drug administered [Unknown]
  - Lethargy [Recovered/Resolved]

NARRATIVE: CASE EVENT DATE: 20160122
